FAERS Safety Report 6579472-2 (Version None)
Quarter: 2010Q1

REPORT INFORMATION
  Report Type: 
  Country: None (occurrence: None)
  Receive Date: 20100212
  Receipt Date: 20100202
  Transmission Date: 20100710
  Serious: Yes (Other)
  Sender: FDA-Public Use
  Company Number: US-JNJFOC-20100205279

PATIENT
  Age: 82 Year
  Sex: Female

DRUGS (2)
  1. INFLIXIMAB [Suspect]
     Indication: PSORIATIC ARTHROPATHY
     Route: 042
  2. METHOTREXATE [Concomitant]

REACTIONS (6)
  - BACTERIAL TEST POSITIVE [None]
  - MYCOBACTERIAL INFECTION [None]
  - POST PROCEDURAL COMPLICATION [None]
  - TENDON NECROSIS [None]
  - TENOSYNOVITIS [None]
  - WOUND DEHISCENCE [None]
